FAERS Safety Report 7022108-7 (Version None)
Quarter: 2010Q3

REPORT INFORMATION
  Report Type: 
  Country: None (occurrence: None)
  Receive Date: 20100930
  Receipt Date: 20100922
  Transmission Date: 20110219
  Serious: Yes (Hospitalization)
  Sender: FDA-Public Use
  Company Number: JP-BRISTOL-MYERS SQUIBB COMPANY-14988745

PATIENT
  Age: 59 Year
  Sex: Female

DRUGS (6)
  1. ERBITUX [Suspect]
     Indication: COLON CANCER
     Dosage: 01-01SEP2009 08SEP09-23MAR2010;400MG RECENT: 16FEB2010(22ND INF)
     Route: 042
     Dates: start: 20090901, end: 20100323
  2. IRINOTECAN HCL [Concomitant]
     Indication: COLON CANCER
     Route: 042
     Dates: start: 20090901, end: 20100316
  3. RESTAMIN [Concomitant]
     Indication: PREMEDICATION
     Route: 048
     Dates: start: 20090901, end: 20100323
  4. DECADRON [Concomitant]
     Indication: PREMEDICATION
     Route: 042
     Dates: start: 20090901, end: 20100323
  5. ZANTAC [Concomitant]
     Route: 042
  6. KYTRIL [Concomitant]
     Route: 041

REACTIONS (1)
  - CELLULITIS [None]
